FAERS Safety Report 9019630 (Version 4)
Quarter: 2013Q4

REPORT INFORMATION
  Report Type: Report from Study
  Country: AU (occurrence: AU)
  Receive Date: 20130118
  Receipt Date: 20131023
  Transmission Date: 20140711
  Serious: Yes (Hospitalization)
  Sender: FDA-Public Use
  Company Number: AU-ROCHE-1177517

PATIENT
  Age: 48 Year
  Sex: Female
  Weight: 41.4 kg

DRUGS (6)
  1. TRASTUZUMAB [Suspect]
     Indication: BREAST CANCER
     Dosage: LAST DOSE PRIOR TO THE EVENT ON 28/DEC/2012
     Route: 042
     Dates: start: 20121228
  2. DOCETAXEL [Suspect]
     Indication: BREAST CANCER
     Dosage: LAST DOSE PRIOR TO THE SAE ON 28/DC/2012
     Route: 042
     Dates: start: 20121228
  3. CARBOPLATIN [Suspect]
     Indication: BREAST CANCER
     Dosage: LAST DOSE PRIRO TOT HE SAE ON 28/DEC/2012
     Route: 042
     Dates: start: 20121228
  4. PRISTIQ [Concomitant]
  5. PLAVIX [Concomitant]
  6. PERTUZUMAB [Suspect]
     Indication: BREAST CANCER
     Dosage: LAST DOSE PRIOR TO THE SAE ON 28/DEC/2012
     Route: 042
     Dates: start: 20121228

REACTIONS (1)
  - Cellulitis [Recovered/Resolved]
